FAERS Safety Report 24850248 (Version 1)
Quarter: 2025Q1

REPORT INFORMATION
  Report Type: Spontaneous
  Country: US (occurrence: None)
  Receive Date: 20250116
  Receipt Date: 20250116
  Transmission Date: 20250408
  Serious: Yes (Hospitalization)
  Sender: FDA-CTU
  Company Number: None

PATIENT
  Sex: Female

DRUGS (1)
  1. ENBREL [Suspect]
     Active Substance: ETANERCEPT
     Indication: Rheumatoid arthritis
     Dosage: FREQUENCY : WEEKLY;?
     Route: 058
     Dates: start: 20221228

REACTIONS (7)
  - Localised infection [None]
  - Cellulitis [None]
  - Loss of personal independence in daily activities [None]
  - Rash [None]
  - Skin irritation [None]
  - Therapy interrupted [None]
  - Pain [None]
